FAERS Safety Report 11419283 (Version 1)
Quarter: 2015Q3

REPORT INFORMATION
  Report Type: Spontaneous
  Country: GB (occurrence: GB)
  Receive Date: 20150826
  Receipt Date: 20150826
  Transmission Date: 20151125
  Serious: Yes (Hospitalization)
  Sender: FDA-Public Use
  Company Number: GB-WATSON-2015-17298

PATIENT
  Age: 48 Year
  Sex: Male
  Weight: 91 kg

DRUGS (5)
  1. HYOSCINE [Suspect]
     Active Substance: SCOPOLAMINE
     Indication: SALIVARY HYPERSECRETION
     Dosage: 1 MG EVERY THREE DAYS / APPLIED THE FIRST ONE IN THE EVENING AND 2 DAYS LATER IN THE MORNING
     Route: 062
     Dates: start: 20140928, end: 20141002
  2. DIPROBASE                          /01210201/ [Concomitant]
     Indication: PRODUCT USED FOR UNKNOWN INDICATION
     Dosage: UNK
     Route: 065
  3. LEVOTHYROXINE SODIUM. [Concomitant]
     Active Substance: LEVOTHYROXINE SODIUM
     Indication: CONGENITAL HYPOTHYROIDISM
     Dosage: UNK
     Route: 065
  4. EPILIM [Suspect]
     Active Substance: VALPROATE SODIUM
     Indication: PRODUCT USED FOR UNKNOWN INDICATION
     Dosage: UNKNOWN (HIGH DOSE)
     Route: 065
  5. LAMOTRIGINE (UNKNOWN) [Suspect]
     Active Substance: LAMOTRIGINE
     Indication: PRODUCT USED FOR UNKNOWN INDICATION
     Dosage: UNKNOWN (HIGH DOSE)
     Route: 065

REACTIONS (2)
  - Tremor [Recovering/Resolving]
  - Autonomic nervous system imbalance [Recovering/Resolving]

NARRATIVE: CASE EVENT DATE: 20140930
